FAERS Safety Report 7745283-5 (Version None)
Quarter: 2011Q3

REPORT INFORMATION
  Report Type: 
  Country: None (occurrence: None)
  Receive Date: 20110819
  Receipt Date: 20110705
  Transmission Date: 20111222
  Serious: Yes (Other)
  Sender: FDA-Public Use
  Company Number: 036680

PATIENT
  Sex: Female
  Weight: 61.2 kg

DRUGS (5)
  1. EVISTA [Concomitant]
  2. EVOXAC [Concomitant]
  3. ZETIA [Concomitant]
  4. LACOSAMIDE [Suspect]
     Indication: CONVULSION
     Dosage: 50 MG BID ORAL
     Route: 048
     Dates: start: 20110702
  5. TOPAMAX [Concomitant]

REACTIONS (3)
  - ANGIOEDEMA [None]
  - PRURITUS [None]
  - LIP DRY [None]
